FAERS Safety Report 18325560 (Version 1)
Quarter: 2020Q3

REPORT INFORMATION
  Report Type: Spontaneous
  Country: FR (occurrence: FR)
  Receive Date: 20200929
  Receipt Date: 20200929
  Transmission Date: 20201103
  Serious: Yes (Other)
  Sender: FDA-Public Use
  Company Number: FR-PFIZER INC-2020247913

PATIENT

DRUGS (1)
  1. LORLATINIB [Suspect]
     Active Substance: LORLATINIB
     Indication: LUNG ADENOCARCINOMA
     Dosage: 4 DF, DAILY
     Dates: start: 202004

REACTIONS (6)
  - Diabetes mellitus [Not Recovered/Not Resolved]
  - Photopsia [Unknown]
  - Hypertriglyceridaemia [Unknown]
  - Off label use [Unknown]
  - Product use in unapproved indication [Unknown]
  - Motor dysfunction [Unknown]

NARRATIVE: CASE EVENT DATE: 202004
